FAERS Safety Report 4357661-5 (Version None)
Quarter: 2004Q2

REPORT INFORMATION
  Report Type: 
  Country: None (occurrence: None)
  Receive Date: 20040511
  Receipt Date: 20040426
  Transmission Date: 20050107
  Serious: Yes (Hospitalization, Other)
  Sender: FDA-Public Use
  Company Number: 6008602

PATIENT
  Age: 66 Year
  Sex: Male

DRUGS (2)
  1. CARDENSIEL          (BISOPROLOL) [Suspect]
     Route: 048
  2. ATORVASTATIN CALCIUM [Suspect]
     Dosage: 10 MG
     Route: 048

REACTIONS (10)
  - BIOPSY SITE UNSPECIFIED ABNORMAL [None]
  - BLOOD CREATINE PHOSPHOKINASE INCREASED [None]
  - BRAIN SCAN ABNORMAL [None]
  - FALL [None]
  - GUILLAIN-BARRE SYNDROME [None]
  - MUSCULAR WEAKNESS [None]
  - MYOPATHY [None]
  - NECROSIS [None]
  - NUCLEAR MAGNETIC RESONANCE IMAGING ABNORMAL [None]
  - PERIPHERAL SENSORY NEUROPATHY [None]
